FAERS Safety Report 20664632 (Version 1)
Quarter: 2022Q2

REPORT INFORMATION
  Report Type: Spontaneous
  Country: BG (occurrence: BG)
  Receive Date: 20220401
  Receipt Date: 20220401
  Transmission Date: 20220721
  Serious: Yes (Death, Hospitalization)
  Sender: FDA-Public Use
  Company Number: BG-PFIZER INC-202200471582

PATIENT
  Age: 58 Year

DRUGS (1)
  1. XELJANZ [Suspect]
     Active Substance: TOFACITINIB CITRATE
     Indication: Colitis ulcerative
     Dosage: 5 MG
     Dates: start: 2021

REACTIONS (2)
  - Respiratory failure [Fatal]
  - COVID-19 [Unknown]

NARRATIVE: CASE EVENT DATE: 20220201
